FAERS Safety Report 8276307-7 (Version None)
Quarter: 2012Q2

REPORT INFORMATION
  Report Type: 
  Country: None (occurrence: None)
  Receive Date: 20120412
  Receipt Date: 20120409
  Transmission Date: 20120825
  Serious: Yes (Death)
  Sender: FDA-Public Use
  Company Number: PHHY2012MX030484

PATIENT
  Age: 45 Year
  Sex: Male

DRUGS (2)
  1. AFINITOR [Suspect]
     Route: 048
  2. SUNITINIB MALATE [Concomitant]

REACTIONS (1)
  - DEATH [None]
